FAERS Safety Report 18442202 (Version 6)
Quarter: 2021Q2

REPORT INFORMATION
  Report Type: Report from Study
  Country: CA (occurrence: CA)
  Receive Date: 20201029
  Receipt Date: 20210405
  Transmission Date: 20210717
  Serious: Yes (Hospitalization, Other)
  Sender: FDA-Public Use
  Company Number: CA-SAMSUNG BIOEPIS-SB-2020-33042

PATIENT
  Age: 63 Year
  Sex: Female
  Weight: 46.8 kg

DRUGS (1)
  1. RENFLEXIS [Suspect]
     Active Substance: INFLIXIMAB-ABDA
     Indication: CROHN^S DISEASE
     Route: 042
     Dates: start: 20191219

REACTIONS (8)
  - Headache [Unknown]
  - Abdominal pain [Not Recovered/Not Resolved]
  - Back pain [Unknown]
  - Product use issue [Unknown]
  - Arthralgia [Unknown]
  - Malaise [Not Recovered/Not Resolved]
  - Meningitis [Recovered/Resolved]
  - Pyrexia [Unknown]

NARRATIVE: CASE EVENT DATE: 20201020
